FAERS Safety Report 8848174 (Version 1)
Quarter: 2012Q4

REPORT INFORMATION
  Report Type: 
  Country: FR (occurrence: FR)
  Receive Date: 20121018
  Receipt Date: 20121018
  Transmission Date: 20130627
  Serious: Yes (Hospitalization)
  Sender: FDA-Public Use
  Company Number: FR-SANOFI-AVENTIS-2012SA074095

PATIENT
  Age: 73 Year
  Sex: Female

DRUGS (16)
  1. STILNOX [Suspect]
     Indication: DRUG USE FOR UNKNOWN INDICATION
     Route: 048
     Dates: end: 20120907
  2. LYRICA [Concomitant]
     Dosage: Dose:1 unit(s)
     Route: 048
  3. DAFALGAN [Concomitant]
     Dosage: strength: 500mg Dose:3 unit(s)
     Route: 048
  4. DOMPERIDONE [Concomitant]
     Route: 048
  5. INEXIUM [Concomitant]
     Dosage: strength: 40mg
     Route: 048
  6. MESTINON [Concomitant]
     Route: 048
  7. SEROPRAM [Concomitant]
     Dosage: Dose:0.5 unit(s)
     Route: 048
  8. SPASFON [Concomitant]
     Dosage: Dose:3 unit(s)
     Route: 048
  9. ALDACTONE [Concomitant]
     Dosage: strength: 75 mg Dose:2 unit(s)
     Route: 048
  10. CARBOSYMAG /FRA/ [Concomitant]
     Dosage: Dose:1 unit(s)
     Route: 048
  11. AVLOCARDYL [Concomitant]
     Dosage: Dose:1 unit(s)
     Route: 048
  12. LASILIX [Concomitant]
     Dosage: strength:40mg Dose:2 unit(s)
     Route: 048
  13. OGAST [Concomitant]
     Dosage: Dose:1 unit(s)
     Route: 048
  14. FURADANTINE [Concomitant]
     Dosage: strength: 50mg
     Route: 048
  15. ALENDRONIC ACID [Concomitant]
     Dosage: Dose:1 unit(s)
     Route: 048
  16. EDUCTYL [Concomitant]
     Dosage: 1 unit each other day Dose:1 unit(s)
     Route: 054

REACTIONS (2)
  - Encephalopathy [Recovered/Resolved]
  - Disorientation [Recovered/Resolved]
